FAERS Safety Report 26092055 (Version 1)
Quarter: 2025Q4

REPORT INFORMATION
  Report Type: Report from Study
  Country: GB (occurrence: GB)
  Receive Date: 20251126
  Receipt Date: 20251126
  Transmission Date: 20260117
  Serious: Yes (Other)
  Sender: ALEXION PHARMACEUTICALS
  Company Number: GB-ASTRAZENECA-202511EEA018428GB

PATIENT
  Sex: Female

DRUGS (1)
  1. ULTOMIRIS [Suspect]
     Active Substance: RAVULIZUMAB-CWVZ
     Indication: Haemolytic uraemic syndrome
     Dosage: 3000 MILLIGRAM

REACTIONS (4)
  - Oropharyngeal pain [Unknown]
  - Nasopharyngitis [Unknown]
  - Fatigue [Unknown]
  - Lower respiratory tract infection [Unknown]
